FAERS Safety Report 5612589-5 (Version None)
Quarter: 2008Q1

REPORT INFORMATION
  Report Type: 
  Country: None (occurrence: None)
  Receive Date: 20080204
  Receipt Date: 20080124
  Transmission Date: 20080703
  Serious: Yes (Other)
  Sender: FDA-Public Use
  Company Number: A0706170A

PATIENT
  Age: 66 Year
  Sex: Male

DRUGS (3)
  1. AVODART [Suspect]
     Dosage: .5MG UNKNOWN
     Route: 048
     Dates: start: 20070912, end: 20071101
  2. COUMADIN [Concomitant]
     Dates: start: 20030101
  3. LIPITOR [Concomitant]
     Indication: BLOOD CHOLESTEROL INCREASED
     Dosage: 10MG UNKNOWN
     Dates: start: 20020101

REACTIONS (3)
  - ANXIETY [None]
  - CEREBROVASCULAR ACCIDENT [None]
  - HYPERTENSION [None]
